FAERS Safety Report 15285028 (Version 1)
Quarter: 2018Q3

REPORT INFORMATION
  Report Type: Spontaneous
  Country: US (occurrence: US)
  Receive Date: 20180816
  Receipt Date: 20180816
  Transmission Date: 20181010
  Serious: No
  Sender: FDA-Public Use
  Company Number: US-GLAXOSMITHKLINE-US2018142577

PATIENT
  Age: 52 Year
  Sex: Female

DRUGS (1)
  1. DICLOFENAC SODIUM GEL [Suspect]
     Active Substance: DICLOFENAC SODIUM
     Indication: SKIN MASS
     Dosage: UNK
     Dates: start: 20180805, end: 20180805

REACTIONS (7)
  - Application site pain [Recovered/Resolved]
  - Application site irritation [Unknown]
  - Scratch [Unknown]
  - Application site erosion [Recovered/Resolved]
  - Off label use [Unknown]
  - Application site erythema [Recovered/Resolved]
  - Wrong technique in product usage process [Unknown]

NARRATIVE: CASE EVENT DATE: 20180805
